FAERS Safety Report 10038889 (Version 1)
Quarter: 2014Q1

REPORT INFORMATION
  Report Type: Spontaneous
  Country: PL (occurrence: PL)
  Receive Date: 20140326
  Receipt Date: 20140326
  Transmission Date: 20141002
  Serious: Yes (Hospitalization)
  Sender: FDA-Public Use
  Company Number: PL-GLAXOSMITHKLINE-B0979709A

PATIENT
  Age: 2 Year
  Sex: Male
  Weight: 14.3 kg

DRUGS (1)
  1. ZINACEF [Suspect]
     Indication: PRODUCT USED FOR UNKNOWN INDICATION
     Dosage: 400MG THREE TIMES PER DAY
     Route: 042
     Dates: start: 20131216, end: 20131217

REACTIONS (1)
  - Pruritus [Recovered/Resolved]
